FAERS Safety Report 5075351-0 (Version None)
Quarter: 2006Q3

REPORT INFORMATION
  Report Type: 
  Country: None (occurrence: None)
  Receive Date: 20060809
  Receipt Date: 20051108
  Transmission Date: 20061208
  Serious: No
  Sender: FDA-Public Use
  Company Number: US-AMGEN-KDL157513

PATIENT
  Sex: Male
  Weight: 73.5 kg

DRUGS (5)
  1. PROCRIT [Suspect]
     Indication: PRE-EXISTING DISEASE
     Route: 058
     Dates: start: 20040623, end: 20041014
  2. ULTRAM [Concomitant]
     Dates: start: 20050101
  3. FLEXERIL [Concomitant]
     Dates: start: 20050101
  4. XANAX [Concomitant]
     Dates: start: 20050101
  5. INDOMETHACIN [Concomitant]
     Dates: start: 20050101

REACTIONS (5)
  - HYPERSENSITIVITY [None]
  - INCISION SITE COMPLICATION [None]
  - INJECTION SITE ABSCESS [None]
  - OEDEMA [None]
  - SCAR [None]
